FAERS Safety Report 24837461 (Version 2)
Quarter: 2025Q1

REPORT INFORMATION
  Report Type: Spontaneous
  Country: RO (occurrence: RO)
  Receive Date: 20250113
  Receipt Date: 20250206
  Transmission Date: 20250409
  Serious: Yes (Hospitalization, Other)
  Sender: BOEHRINGER INGELHEIM
  Company Number: None

PATIENT
  Age: 57 Year
  Sex: Male
  Weight: 82 kg

DRUGS (5)
  1. JARDIANCE [Suspect]
     Active Substance: EMPAGLIFLOZIN
     Indication: Type 2 diabetes mellitus
     Dates: start: 20240425, end: 20241226
  2. LANTUS SOLOSTAR [Concomitant]
     Active Substance: INSULIN GLARGINE
     Indication: Product used for unknown indication
  3. Prestarium 5 mg [Concomitant]
     Indication: Hypertension
  4. GLUCOPHAGE [Concomitant]
     Active Substance: METFORMIN HYDROCHLORIDE
     Indication: Product used for unknown indication
  5. FIASP (insulinum aspart) [Concomitant]
     Indication: Product used for unknown indication

REACTIONS (14)
  - Arrhythmia [Recovered/Resolved]
  - Polyuria [Recovered/Resolved]
  - Polydipsia [Recovered/Resolved]
  - Ventricular extrasystoles [Recovered/Resolved]
  - Sinus bradycardia [Recovered/Resolved]
  - Cardiac arrest [Recovered/Resolved]
  - Genital burning sensation [Recovered/Resolved]
  - Pruritus genital [Recovered/Resolved]
  - Thirst [Recovered/Resolved]
  - Fatigue [Recovered/Resolved]
  - Myalgia [Recovered/Resolved]
  - Dehydration [Recovered/Resolved]
  - Dizziness [Recovered/Resolved]
  - Palpitations [Recovered/Resolved]

NARRATIVE: CASE EVENT DATE: 20240516
